FAERS Safety Report 17794721 (Version 1)
Quarter: 2020Q2

REPORT INFORMATION
  Report Type: Spontaneous
  Country: US (occurrence: US)
  Receive Date: 20200515
  Receipt Date: 20200515
  Transmission Date: 20200714
  Serious: Yes (Life-Threatening, Hospitalization)
  Sender: FDA-Public Use
  Company Number: US-ASTRAZENECA-2020SE14350

PATIENT
  Age: 87 Day
  Sex: Male
  Weight: 6 kg

DRUGS (10)
  1. SYNAGIS [Suspect]
     Active Substance: PALIVIZUMAB
     Indication: PULMONARY HYPERTENSION
     Dosage: 3/4 0.07ML, 1/31 0.03ML, 1/3 0.78ML, 12/5 0.7ML,
     Route: 030
     Dates: start: 201912
  2. SYNAGIS [Suspect]
     Active Substance: PALIVIZUMAB
     Indication: TRISOMY 21
     Dosage: 3/4 0.07ML, 1/31 0.03ML, 1/3 0.78ML, 12/5 0.7ML,
     Route: 030
     Dates: start: 201912
  3. SYNAGIS [Suspect]
     Active Substance: PALIVIZUMAB
     Indication: CONGENITAL MEGACOLON
     Dosage: 3/4 0.07ML, 1/31 0.03ML, 1/3 0.78ML, 12/5 0.7ML,
     Route: 030
     Dates: start: 201912
  4. SYNAGIS [Suspect]
     Active Substance: PALIVIZUMAB
     Indication: TRISOMY 21
     Route: 030
     Dates: start: 201912
  5. SYNAGIS [Suspect]
     Active Substance: PALIVIZUMAB
     Indication: FIRST TRIMESTER PREGNANCY
     Dosage: 3/4 0.07ML, 1/31 0.03ML, 1/3 0.78ML, 12/5 0.7ML,
     Route: 030
     Dates: start: 201912
  6. SYNAGIS [Suspect]
     Active Substance: PALIVIZUMAB
     Indication: CONGENITAL MEGACOLON
     Route: 030
     Dates: start: 201912
  7. SYNAGIS [Suspect]
     Active Substance: PALIVIZUMAB
     Indication: CHRONIC RESPIRATORY DISEASE
     Route: 030
     Dates: start: 201912
  8. SYNAGIS [Suspect]
     Active Substance: PALIVIZUMAB
     Indication: FIRST TRIMESTER PREGNANCY
     Route: 030
     Dates: start: 201912
  9. SYNAGIS [Suspect]
     Active Substance: PALIVIZUMAB
     Indication: CHRONIC RESPIRATORY DISEASE
     Dosage: 3/4 0.07ML, 1/31 0.03ML, 1/3 0.78ML, 12/5 0.7ML,
     Route: 030
     Dates: start: 201912
  10. SYNAGIS [Suspect]
     Active Substance: PALIVIZUMAB
     Indication: PULMONARY HYPERTENSION
     Route: 030
     Dates: start: 201912

REACTIONS (11)
  - Vomiting [Unknown]
  - Rhinorrhoea [Unknown]
  - Dyspnoea [Unknown]
  - Ileus [Unknown]
  - Respiratory syncytial virus bronchiolitis [Unknown]
  - Hypoxia [Unknown]
  - Hypovolaemia [Recovered/Resolved]
  - Weight decreased [Unknown]
  - Dehydration [Recovered/Resolved]
  - Respiratory distress [Unknown]
  - Small intestinal obstruction [Unknown]

NARRATIVE: CASE EVENT DATE: 20200111
